FAERS Safety Report 22930322 (Version 2)
Quarter: 2024Q1

REPORT INFORMATION
  Report Type: Other
  Country: GB (occurrence: None)
  Receive Date: 20230911
  Receipt Date: 20240308
  Transmission Date: 20240409
  Serious: Yes (Other)
  Sender: FDA-Public Use
  Company Number: GB-ROCHE-3419216

PATIENT

DRUGS (2)
  1. ATEZOLIZUMAB [Suspect]
     Active Substance: ATEZOLIZUMAB
     Indication: Hepatocellular carcinoma
     Route: 042
  2. BEVACIZUMAB [Suspect]
     Active Substance: BEVACIZUMAB
     Indication: Hepatocellular carcinoma
     Route: 042

REACTIONS (21)
  - Hepatotoxicity [Unknown]
  - Fatigue [Unknown]
  - Colitis [Unknown]
  - Hyperthyroidism [Unknown]
  - Arthritis [Unknown]
  - Pneumonitis [Unknown]
  - Neuropathy peripheral [Unknown]
  - Hypertension [Unknown]
  - Proteinuria [Unknown]
  - Haemorrhage [Unknown]
  - Thrombosis [Unknown]
  - Diarrhoea [Unknown]
  - Mesenteric vein thrombosis [Unknown]
  - Oesophageal varices haemorrhage [Unknown]
  - Immune-mediated hepatic disorder [Unknown]
  - Immune system disorder [Unknown]
  - Skin toxicity [Unknown]
  - Nephritis [Unknown]
  - Hepatitis [Unknown]
  - Neurotoxicity [Unknown]
  - Pulmonary toxicity [Unknown]
